FAERS Safety Report 10068905 (Version 1)
Quarter: 2014Q2

REPORT INFORMATION
  Report Type: Spontaneous
  Country: BR (occurrence: BR)
  Receive Date: 20140409
  Receipt Date: 20140409
  Transmission Date: 20141212
  Serious: Yes (Other)
  Sender: FDA-Public Use
  Company Number: BR-PFIZER INC-2014097691

PATIENT
  Age: 55 Year
  Sex: Female
  Weight: 92 kg

DRUGS (5)
  1. FRONTAL [Suspect]
     Indication: DEPRESSION
     Dosage: 2 TABLETS OF STRENGTH 1 MG (2 MG) IN THE MORNING AND 2 TABLETS OF STRENGTH 1 MG (2 MG) AT NIGHT
     Route: 048
     Dates: start: 2006
  2. ARADOIS [Concomitant]
     Indication: HYPERTENSION
     Dosage: 3 TABLETS, DAILY
  3. HYDROCHLOROTHIAZIDE [Concomitant]
     Dosage: STRENGTH 25 MG, UNK
  4. OMEPRAZOLE [Concomitant]
     Dosage: STRENGTH 30 MG, UNK
  5. SIMVASTATIN [Concomitant]
     Dosage: STRENGTH 10 MG, UNK

REACTIONS (5)
  - Infarction [Unknown]
  - Angina pectoris [Unknown]
  - Diabetes mellitus [Unknown]
  - Lipoma [Unknown]
  - Weight decreased [Not Recovered/Not Resolved]
